FAERS Safety Report 16666449 (Version 1)
Quarter: 2019Q3

REPORT INFORMATION
  Report Type: Spontaneous
  Country: CL (occurrence: CL)
  Receive Date: 20190805
  Receipt Date: 20190805
  Transmission Date: 20191004
  Serious: Yes (Other)
  Sender: FDA-Public Use
  Company Number: CL-ORION CORPORATION ORION PHARMA-TREX2019-2569

PATIENT
  Age: 52 Year
  Sex: Female

DRUGS (1)
  1. METHOTREXATE (METHOTREXATE SODIUM) [Suspect]
     Active Substance: METHOTREXATE SODIUM
     Indication: UVEITIS
     Dosage: 4 TABLETS OF 2.5 MG (EVERY THURSDAY)
     Route: 048

REACTIONS (2)
  - Liver injury [Unknown]
  - Product use in unapproved indication [Unknown]
